FAERS Safety Report 17677348 (Version 2)
Quarter: 2020Q2

REPORT INFORMATION
  Report Type: Report from Study
  Country: US (occurrence: US)
  Receive Date: 20200416
  Receipt Date: 20200430
  Transmission Date: 20200714
  Serious: Yes (Death, Other)
  Sender: FDA-Public Use
  Company Number: US-AGIOS-2003US01790

PATIENT

DRUGS (2)
  1. TIBSOVO [Suspect]
     Active Substance: IVOSIDENIB
     Indication: CHOLANGIOCARCINOMA
  2. TIBSOVO [Suspect]
     Active Substance: IVOSIDENIB
     Indication: BILE DUCT CANCER
     Dosage: 500 MILLIGRAM, QD
     Route: 048
     Dates: start: 20200222, end: 20200409

REACTIONS (3)
  - Nausea [Unknown]
  - Off label use [Unknown]
  - Death [Fatal]

NARRATIVE: CASE EVENT DATE: 20200222
